FAERS Safety Report 8613358-4 (Version None)
Quarter: 2012Q3

REPORT INFORMATION
  Report Type: 
  Country: None (occurrence: None)
  Receive Date: 20120822
  Receipt Date: 20061006
  Transmission Date: 20120928
  Serious: Yes (Hospitalization, Other)
  Sender: FDA-Public Use
  Company Number: PHMT2005CA00511

PATIENT
  Sex: Female

DRUGS (3)
  1. METOPROLOL TARTRATE [Concomitant]
  2. SANDOSTATIN LAR [Suspect]
     Indication: CARCINOID TUMOUR
     Dosage: 20 MG, EVERY 4 WEEKS
     Route: 030
     Dates: start: 20021111
  3. OMEPRAZOLE [Concomitant]

REACTIONS (10)
  - JAUNDICE [None]
  - SEPSIS [None]
  - BLOOD PRESSURE INCREASED [None]
  - NEOPLASM MALIGNANT [None]
  - NEOPLASM PROGRESSION [None]
  - RECTAL HAEMORRHAGE [None]
  - METASTASES TO LIVER [None]
  - POLYP [None]
  - HYPOAESTHESIA [None]
  - FLUSHING [None]
